FAERS Safety Report 25055214 (Version 1)
Quarter: 2025Q1

REPORT INFORMATION
  Report Type: Spontaneous
  Country: JP (occurrence: JP)
  Receive Date: 20250308
  Receipt Date: 20250308
  Transmission Date: 20250409
  Serious: Yes (Other)
  Sender: UNICHEM
  Company Number: JP-UNICHEM LABORATORIES LIMITED-UNI-2025-JP-001390

PATIENT

DRUGS (9)
  1. DIVALPROEX SODIUM [Interacting]
     Active Substance: DIVALPROEX SODIUM
     Indication: Epilepsy
     Route: 065
  2. RISPERIDONE [Interacting]
     Active Substance: RISPERIDONE
     Indication: Psychomotor hyperactivity
     Route: 065
  3. RISPERIDONE [Interacting]
     Active Substance: RISPERIDONE
     Route: 065
  4. RISPERIDONE [Interacting]
     Active Substance: RISPERIDONE
     Route: 065
  5. RISPERIDONE [Interacting]
     Active Substance: RISPERIDONE
     Route: 065
  6. PALIPERIDONE [Interacting]
     Active Substance: PALIPERIDONE
     Indication: Psychomotor hyperactivity
     Route: 048
  7. PALIPERIDONE [Interacting]
     Active Substance: PALIPERIDONE
     Route: 048
  8. EMPAGLIFLOZIN [Concomitant]
     Active Substance: EMPAGLIFLOZIN
     Indication: Diabetes mellitus
     Route: 065
  9. BREXPIPRAZOLE [Concomitant]
     Active Substance: BREXPIPRAZOLE
     Indication: Psychiatric symptom
     Route: 065

REACTIONS (3)
  - Drug interaction [Unknown]
  - Extrapyramidal disorder [Recovering/Resolving]
  - Condition aggravated [Recovering/Resolving]
